FAERS Safety Report 10488738 (Version 1)
Quarter: 2014Q4

REPORT INFORMATION
  Report Type: Spontaneous
  Country: TR (occurrence: TR)
  Receive Date: 20141002
  Receipt Date: 20141002
  Transmission Date: 20150528
  Serious: Yes (Hospitalization)
  Sender: FDA-Public Use
  Company Number: TR-NOVOPROD-424001

PATIENT
  Age: 11 Year
  Sex: Female

DRUGS (2)
  1. NORDITROPIN [Suspect]
     Active Substance: SOMATROPIN
     Indication: GROWTH HORMONE DEFICIENCY
     Dosage: 1.0 MG, QD (FOR 2 DAYS)
     Route: 065
  2. NORDITROPIN [Suspect]
     Active Substance: SOMATROPIN
     Dosage: 1.1 MG, QD (FOR 4 DAYS)

REACTIONS (1)
  - Ovarian cyst [Recovered/Resolved]

NARRATIVE: CASE EVENT DATE: 2014
